FAERS Safety Report 4932029-9 (Version None)
Quarter: 2006Q1

REPORT INFORMATION
  Report Type: 
  Country: None (occurrence: None)
  Receive Date: 20060303
  Receipt Date: 20060217
  Transmission Date: 20060701
  Serious: Yes (Hospitalization, Other)
  Sender: FDA-Public Use
  Company Number: CA-AMGEN-US169031

PATIENT
  Sex: Male

DRUGS (7)
  1. ENBREL [Suspect]
     Indication: RHEUMATOID ARTHRITIS
     Route: 058
     Dates: start: 20050803, end: 20060207
  2. METHOTREXATE [Concomitant]
     Dates: start: 20031112
  3. FOLIC ACID [Concomitant]
     Dates: start: 20031102
  4. CELEBREX [Concomitant]
     Dates: start: 20040411
  5. NORVASC [Concomitant]
  6. HYDROCHLOROTHIAZIDE [Concomitant]
  7. ALLOPURINOL [Concomitant]

REACTIONS (6)
  - BRONCHITIS [None]
  - COUGH [None]
  - HAEMOPTYSIS [None]
  - HYPERTHERMIA [None]
  - PNEUMONIA [None]
  - RESPIRATORY TRACT INFECTION [None]
